FAERS Safety Report 7666432-3 (Version None)
Quarter: 2011Q3

REPORT INFORMATION
  Report Type: 
  Country: None (occurrence: None)
  Receive Date: 20110806
  Receipt Date: 20110525
  Transmission Date: 20111222
  Serious: No
  Sender: FDA-Public Use
  Company Number: US-ABBOTT-11P-163-0729237-00

PATIENT
  Sex: Female
  Weight: 57.658 kg

DRUGS (9)
  1. ASPIRIN [Concomitant]
     Indication: PRODUCT USED FOR UNKNOWN INDICATION
  2. ALPRAZOLAM [Concomitant]
     Indication: PRODUCT USED FOR UNKNOWN INDICATION
  3. TOPROL-XL [Concomitant]
     Indication: PRODUCT USED FOR UNKNOWN INDICATION
  4. FLAX SEED OIL [Concomitant]
     Indication: PRODUCT USED FOR UNKNOWN INDICATION
  5. NIASPAN [Suspect]
     Indication: LOW DENSITY LIPOPROTEIN INCREASED
     Dosage: AT NIGHT
     Dates: start: 20100101
  6. VITAMIN B [Concomitant]
     Indication: VITAMIN SUPPLEMENTATION
  7. ZYRTEC [Concomitant]
     Indication: PRODUCT USED FOR UNKNOWN INDICATION
  8. MULTI-VITAMIN [Concomitant]
     Indication: VITAMIN SUPPLEMENTATION
  9. NIASPAN [Suspect]
     Indication: HIGH DENSITY LIPOPROTEIN DECREASED

REACTIONS (11)
  - URTICARIA [None]
  - FEELING HOT [None]
  - NAUSEA [None]
  - DIVERTICULUM [None]
  - PARAESTHESIA [None]
  - ABDOMINAL PAIN [None]
  - DIARRHOEA [None]
  - CORONARY ARTERY OCCLUSION [None]
  - FLUSHING [None]
  - CHEST PAIN [None]
  - GASTRIC INFECTION [None]
